FAERS Safety Report 23732273 (Version 3)
Quarter: 2025Q1

REPORT INFORMATION
  Report Type: Spontaneous
  Country: FR (occurrence: FR)
  Receive Date: 20240411
  Receipt Date: 20250103
  Transmission Date: 20250409
  Serious: Yes (Hospitalization, Other)
  Sender: PFIZER
  Company Number: FR-PFIZER INC-PV202300158969

PATIENT
  Age: 43 Year
  Sex: Male
  Weight: 56.4 kg

DRUGS (10)
  1. OXBRYTA [Suspect]
     Active Substance: VOXELOTOR
     Indication: Sickle cell disease
     Route: 048
     Dates: start: 20230914
  2. OXBRYTA [Suspect]
     Active Substance: VOXELOTOR
     Dosage: 1500 MG, 1X/DAY ( 3 TABLETS A DAY)
     Route: 048
  3. OXBRYTA [Suspect]
     Active Substance: VOXELOTOR
     Dosage: 1000 MG, DAILY (2 TABLETS A DAY)
     Route: 048
  4. OXBRYTA [Suspect]
     Active Substance: VOXELOTOR
     Dosage: 1 TABLET A DAY
     Dates: end: 20241020
  5. CALCIUM [Concomitant]
     Active Substance: CALCIUM
     Indication: Osteoporosis
     Dosage: 1 DF, DAILY
     Dates: start: 2020
  6. DIETARY SUPPLEMENT [Concomitant]
     Active Substance: DIETARY SUPPLEMENT
     Dosage: 1 DF, DAILY
  7. HYDREA [Concomitant]
     Active Substance: HYDROXYUREA
     Indication: Sickle cell disease
     Dosage: 1000 MG, DAILY
     Dates: start: 20200111
  8. HYDROXYUREA [Concomitant]
     Active Substance: HYDROXYUREA
     Indication: Sickle cell disease
  9. FOLIC ACID [Concomitant]
     Active Substance: FOLIC ACID
     Indication: Sickle cell disease
     Dosage: SINCE CHILDHOOD
  10. CHOLECALCIFEROL [Concomitant]
     Active Substance: CHOLECALCIFEROL
     Indication: Vitamin D deficiency
     Dosage: 1 VIAL EVERY FIRST 15 DAYS OF EACH MONTH SINCE CHILDHOOD

REACTIONS (9)
  - Haemoglobin decreased [Unknown]
  - Haematocrit decreased [Unknown]
  - Gingival bleeding [Recovered/Resolved]
  - Thrombocytopenia [Recovered/Resolved]
  - White blood cell count increased [Unknown]
  - Blood bilirubin increased [Unknown]
  - Neutrophil count increased [Unknown]
  - Off label use [Unknown]
  - Recalled product administered [Unknown]

NARRATIVE: CASE EVENT DATE: 20230914
